FAERS Safety Report 23191759 (Version 5)
Quarter: 2025Q4

REPORT INFORMATION
  Report Type: Other
  Country: US (occurrence: US)
  Receive Date: 20231116
  Receipt Date: 20251224
  Transmission Date: 20260118
  Serious: No
  Sender: TRAVERE THERAPEUTICS
  Company Number: US-TRAVERE-2023TVT00631

PATIENT
  Age: 41 Year
  Sex: Female

DRUGS (3)
  1. FILSPARI [Suspect]
     Active Substance: SPARSENTAN
     Indication: IgA nephropathy
     Route: 048
     Dates: start: 20231003, end: 202411
  2. FILSPARI [Suspect]
     Active Substance: SPARSENTAN
     Route: 048
     Dates: start: 202411
  3. FILSPARI [Suspect]
     Active Substance: SPARSENTAN
     Route: 048

REACTIONS (4)
  - Headache [Recovered/Resolved]
  - Fatigue [Unknown]
  - Pain [Unknown]
  - Back pain [Unknown]
